FAERS Safety Report 14827233 (Version 1)
Quarter: 2018Q2

REPORT INFORMATION
  Report Type: Spontaneous
  Country: US (occurrence: US)
  Receive Date: 20180430
  Receipt Date: 20180430
  Transmission Date: 20180711
  Serious: No
  Sender: FDA-Public Use
  Company Number: US-ABBVIE-18P-163-2315210-00

PATIENT
  Age: 66 Year
  Sex: Female
  Weight: 49.94 kg

DRUGS (3)
  1. LOPERAMIDE [Concomitant]
     Active Substance: LOPERAMIDE
     Indication: DIARRHOEA
     Dosage: EVERY 4 HOURS
     Dates: start: 2014
  2. CREON [Suspect]
     Active Substance: PANCRELIPASE AMYLASE\PANCRELIPASE LIPASE\PANCRELIPASE PROTEASE
     Dosage: 1 OR 2 CAPSULES WITH EACH MEAL FOR 3 MEALS, NO CAPSULES WITH SNACKS
     Route: 048
     Dates: start: 201804
  3. CREON [Suspect]
     Active Substance: PANCRELIPASE AMYLASE\PANCRELIPASE LIPASE\PANCRELIPASE PROTEASE
     Indication: SHORT-BOWEL SYNDROME
     Dosage: 3 CAPSULES WITH EACH MEAL FOR 3 MEALS, 2 CAPSULES WITH EACH SNACK
     Route: 048
     Dates: start: 201802, end: 201804

REACTIONS (4)
  - Nodule [Recovering/Resolving]
  - Weight increased [Unknown]
  - Limb mass [Recovered/Resolved]
  - Pruritus [Recovering/Resolving]

NARRATIVE: CASE EVENT DATE: 2018
